FAERS Safety Report 10161749 (Version 1)
Quarter: 2014Q2

REPORT INFORMATION
  Report Type: Spontaneous
  Country: US (occurrence: US)
  Receive Date: 20140509
  Receipt Date: 20140509
  Transmission Date: 20141212
  Serious: Yes (Hospitalization, Disabling, Other)
  Sender: FDA-Public Use
  Company Number: US-JNJFOC-20140420166

PATIENT
  Age: 52 Year
  Sex: Male

DRUGS (1)
  1. NEOSPORIN [Suspect]
     Indication: WOUND TREATMENT
     Route: 061

REACTIONS (1)
  - Localised infection [Recovered/Resolved]
